FAERS Safety Report 18970977 (Version 3)
Quarter: 2021Q2

REPORT INFORMATION
  Report Type: Report from Study
  Country: None (occurrence: NL)
  Receive Date: 20210305
  Receipt Date: 20210416
  Transmission Date: 20210717
  Serious: Yes (Death, Hospitalization)
  Sender: FDA-Public Use
  Company Number: NL-ABBVIE-21K-114-3798210-00

PATIENT
  Sex: Female

DRUGS (8)
  1. DOMPERIDONE [Concomitant]
     Active Substance: DOMPERIDONE
     Indication: HYPOTENSION
     Route: 048
  2. DUODOPA [Suspect]
     Active Substance: CARBIDOPA\LEVODOPA
     Dosage: MD 10.7 ML; CD 7.2 ML/H; ED 4.0 ML
     Route: 050
  3. DUODOPA [Suspect]
     Active Substance: CARBIDOPA\LEVODOPA
     Dosage: MD: 10.4 ML
     Route: 050
  4. DUODOPA [Suspect]
     Active Substance: CARBIDOPA\LEVODOPA
     Indication: PARKINSON^S DISEASE
     Dosage: CND: 5.8 ML/H
     Route: 050
     Dates: start: 20190319
  5. DUODOPA [Suspect]
     Active Substance: CARBIDOPA\LEVODOPA
     Dosage: CD 7ML/H; CND 6.1 ML/H
     Route: 050
  6. DUODOPA [Suspect]
     Active Substance: CARBIDOPA\LEVODOPA
     Dosage: CND 5.5 ML/H
     Route: 050
  7. ROPINIROLE. [Concomitant]
     Active Substance: ROPINIROLE
     Indication: BLOOD PRESSURE MEASUREMENT
     Dates: end: 20191228
  8. DUODOPA [Suspect]
     Active Substance: CARBIDOPA\LEVODOPA
     Dosage: MD 10.4 ML; CND 6.3 ML/H; END 4.0 ML
     Route: 050

REACTIONS (5)
  - Increased upper airway secretion [Not Recovered/Not Resolved]
  - Multiple system atrophy [Not Recovered/Not Resolved]
  - Pneumonia aspiration [Fatal]
  - Dyspnoea [Unknown]
  - Malaise [Not Recovered/Not Resolved]
